FAERS Safety Report 4303522-7 (Version None)
Quarter: 2004Q1

REPORT INFORMATION
  Report Type: 
  Country: None (occurrence: None)
  Receive Date: 20040225
  Receipt Date: 20040121
  Transmission Date: 20041129
  Serious: Yes (Hospitalization)
  Sender: FDA-Public Use
  Company Number: 200410515US

PATIENT
  Age: 58 Year
  Sex: Female

DRUGS (9)
  1. TAXOTERE [Suspect]
     Indication: NON-SMALL CELL LUNG CANCER
     Route: 042
     Dates: start: 20031215
  2. COLONY STIMULATING FACTORS [Suspect]
     Dates: start: 20031222
  3. CLONIDINE [Concomitant]
  4. AMLODIPINE/BENAZEPRIL [Concomitant]
  5. LITHIUM CARBONATE [Concomitant]
  6. NAPROXEN [Concomitant]
  7. ALBUTEROL [Concomitant]
  8. FLUTICASONE PROPIONATE INHALER [Concomitant]
  9. SALBUTAMOL W/IPRATROPIUM BROMIDE [Concomitant]

REACTIONS (6)
  - BLOOD PRESSURE INCREASED [None]
  - HEART RATE INCREASED [None]
  - LEUKOCYTOSIS [None]
  - OXYGEN SATURATION DECREASED [None]
  - PULMONARY HILUM MASS [None]
  - UPPER RESPIRATORY TRACT INFECTION [None]
